FAERS Safety Report 4564098-2 (Version None)
Quarter: 2005Q1

REPORT INFORMATION
  Report Type: 
  Country: None (occurrence: None)
  Receive Date: 20050126
  Receipt Date: 20050120
  Transmission Date: 20050727
  Serious: Yes (Other)
  Sender: FDA-Public Use
  Company Number: 200211439BVD

PATIENT
  Age: 71 Year
  Sex: Male
  Weight: 86.4 kg

DRUGS (21)
  1. LIPOBAY (CERIVASTATIN SODIUM) [Suspect]
     Indication: HYPERCHOLESTEROLAEMIA
     Dosage: 0.3 MG, TOTAL DAILY, ORAL
     Route: 048
     Dates: start: 19990126, end: 20010801
  2. SORTIS [Concomitant]
  3. DELIX PLUS [Concomitant]
  4. BELOC ZOK [Concomitant]
  5. CORVATON RETARD [Concomitant]
  6. ISOKET RETARD [Concomitant]
  7. ASS 100 [Concomitant]
  8. SOSTRIL [Concomitant]
  9. ALLOPURINOL [Concomitant]
  10. ACTRAPHANE [Concomitant]
  11. PROTAPHAN [Concomitant]
  12. ACTRAPID [Concomitant]
  13. DILTIAZEM HCL [Concomitant]
  14. ESIDRIX [Concomitant]
  15. PANTOZOL [Concomitant]
  16. AMINEURIN [Concomitant]
  17. ARELIX ^AVENTIS PHARMA^ [Concomitant]
  18. ALLOPURINOL [Concomitant]
  19. METOCLOPRAMIDE HYDROCHLORIDE [Concomitant]
  20. LANTUS [Concomitant]
  21. NOVORAPID [Concomitant]

REACTIONS (16)
  - ABASIA [None]
  - ARTERIAL OCCLUSIVE DISEASE [None]
  - ARTERIOSCLEROSIS [None]
  - ARTHRALGIA [None]
  - BLOOD CREATININE INCREASED [None]
  - BONE PAIN [None]
  - BUTTOCK PAIN [None]
  - DIABETIC NEUROPATHY [None]
  - HYPERAESTHESIA [None]
  - HYPOAESTHESIA [None]
  - MUSCLE ATROPHY [None]
  - MUSCULAR WEAKNESS [None]
  - MYALGIA [None]
  - NEPHROPATHY [None]
  - PAIN IN EXTREMITY [None]
  - RETINOPATHY [None]
